FAERS Safety Report 10200364 (Version 1)
Quarter: 2014Q2

REPORT INFORMATION
  Report Type: Spontaneous
  Country: CA (occurrence: CA)
  Receive Date: 20140528
  Receipt Date: 20140528
  Transmission Date: 20141212
  Serious: Yes (Death, Other)
  Sender: FDA-Public Use
  Company Number: CA-AMGEN-CANSP2014037739

PATIENT
  Age: 70 Year
  Sex: Female

DRUGS (1)
  1. PROLIA [Suspect]
     Indication: PRODUCT USED FOR UNKNOWN INDICATION
     Dosage: 60 MG, Q6MO
     Route: 058
     Dates: start: 20111208

REACTIONS (6)
  - Death [Fatal]
  - Breast cancer [Unknown]
  - Lung disorder [Unknown]
  - Oxygen saturation abnormal [Unknown]
  - Fall [Unknown]
  - Musculoskeletal chest pain [Unknown]
